FAERS Safety Report 6299747 (Version 2)
Quarter: 2020Q3

REPORT INFORMATION
  Report Type: Report from Study
  Country: US (occurrence: US)
  Receive Date: 20070430
  Receipt Date: 20070521
  Transmission Date: 20201104
  Serious: Yes (Hospitalization)
  Sender: FDA-Public Use
  Company Number: US-JNJFOC-20070404196

PATIENT
  Age: 24 Year
  Sex: Male
  Weight: 90.72 kg

DRUGS (11)
  1. PALIPERIDONE PALMITATE [Suspect]
     Active Substance: PALIPERIDONE PALMITATE
     Indication: SCHIZOPHRENIA
  2. COGENTIN [Concomitant]
     Active Substance: BENZTROPINE MESYLATE
     Route: 048
  3. LORAZEPAM. [Concomitant]
     Active Substance: LORAZEPAM
     Indication: ANXIETY
  4. BISMUTH SUBSALICYLATE. [Concomitant]
     Active Substance: BISMUTH SUBSALICYLATE
     Route: 048
  5. PALIPERIDONE. [Suspect]
     Active Substance: PALIPERIDONE
     Indication: SCHIZOPHRENIA
     Route: 048
  6. PALIPERIDONE. [Suspect]
     Active Substance: PALIPERIDONE
     Route: 048
  7. COGENTIN [Concomitant]
     Active Substance: BENZTROPINE MESYLATE
     Indication: PROPHYLAXIS
     Route: 048
  8. BISMUTH SUBSALICYLATE. [Concomitant]
     Active Substance: BISMUTH SUBSALICYLATE
     Route: 048
  9. IBUPROFEN. [Concomitant]
     Active Substance: IBUPROFEN
     Indication: HEADACHE
     Route: 048
  10. PROLIXIN [Concomitant]
     Active Substance: FLUPHENAZINE HYDROCHLORIDE
     Indication: SCHIZOPHRENIA
     Route: 048
  11. IBUPROFEN. [Concomitant]
     Active Substance: IBUPROFEN
     Route: 048

REACTIONS (2)
  - Schizophrenia [Not Recovered/Not Resolved]
  - Condition aggravated [None]

NARRATIVE: CASE EVENT DATE: 20070414
